FAERS Safety Report 11165608 (Version 5)
Quarter: 2016Q1

REPORT INFORMATION
  Report Type: Spontaneous
  Country: US (occurrence: US)
  Receive Date: 20150604
  Receipt Date: 20160125
  Transmission Date: 20160525
  Serious: No
  Sender: FDA-Public Use
  Company Number: US-PFIZER INC-2015188401

PATIENT
  Age: 84 Year
  Sex: Female

DRUGS (3)
  1. REVATIO [Suspect]
     Active Substance: SILDENAFIL CITRATE
     Indication: PULMONARY ARTERIAL HYPERTENSION
     Dosage: 25, UNK
  2. REVATIO [Suspect]
     Active Substance: SILDENAFIL CITRATE
     Indication: VEIN DISORDER
     Dosage: 40 MG, 3X/DAY, (2 TABLETS)
     Route: 048
     Dates: start: 20130120
  3. REVATIO [Suspect]
     Active Substance: SILDENAFIL CITRATE
     Dosage: DAILY (2 TABLETS)
     Route: 048

REACTIONS (1)
  - Drug ineffective [Not Recovered/Not Resolved]
